FAERS Safety Report 8281810-X (Version None)
Quarter: 2012Q2

REPORT INFORMATION
  Report Type: 
  Country: None (occurrence: None)
  Receive Date: 20120413
  Receipt Date: 20120405
  Transmission Date: 20120825
  Serious: Yes (Hospitalization)
  Sender: FDA-Public Use
  Company Number: CL-JNJFOC-20120404355

PATIENT
  Age: 20 Year
  Sex: Male

DRUGS (3)
  1. CHLORMEZANONE [Suspect]
     Indication: RESPIRATORY DISORDER
     Route: 065
  2. TAMIFLU [Suspect]
     Indication: RESPIRATORY DISORDER
     Route: 065
  3. IBUPROFEN [Suspect]
     Indication: RESPIRATORY DISORDER
     Route: 065

REACTIONS (2)
  - MYCOPLASMA INFECTION [None]
  - TOXIC EPIDERMAL NECROLYSIS [None]
